FAERS Safety Report 26073542 (Version 1)
Quarter: 2025Q4

REPORT INFORMATION
  Report Type: Other
  Country: GB (occurrence: GB)
  Receive Date: 20251121
  Receipt Date: 20251121
  Transmission Date: 20260118
  Serious: Yes (Life-Threatening, Other)
  Sender: GLENMARK
  Company Number: None

PATIENT
  Sex: Male

DRUGS (1)
  1. MONTELUKAST SODIUM [Suspect]
     Active Substance: MONTELUKAST SODIUM
     Indication: Product used for unknown indication
     Dosage: UNK
     Route: 065

REACTIONS (6)
  - Petit mal epilepsy [Recovered/Resolved with Sequelae]
  - Depression suicidal [Recovered/Resolved with Sequelae]
  - Medication error [Unknown]
  - Confusional state [Unknown]
  - Aggression [Unknown]
  - Anxiety [Unknown]
